FAERS Safety Report 18092887 (Version 1)
Quarter: 2020Q3

REPORT INFORMATION
  Report Type: Spontaneous
  Country: IT (occurrence: IT)
  Receive Date: 20200730
  Receipt Date: 20200730
  Transmission Date: 20201103
  Serious: Yes (Hospitalization, Other)
  Sender: FDA-Public Use
  Company Number: IT-MYLANLABS-2020M1067506

PATIENT
  Sex: Male

DRUGS (2)
  1. LINEZOLID. [Suspect]
     Active Substance: LINEZOLID
     Indication: MENINGITIS STAPHYLOCOCCAL
     Dosage: 10 MILLIGRAM/KILOGRAM, TID, ADMINISTERED IN 1 HOUR
     Route: 042
  2. VANCOMYCIN [Concomitant]
     Active Substance: VANCOMYCIN
     Indication: MENINGITIS STAPHYLOCOCCAL
     Dosage: 15 MG/KG, FOUR TIMES IN A DAY
     Route: 037

REACTIONS (2)
  - Electrocardiogram QT prolonged [Recovered/Resolved]
  - Drug level below therapeutic [Unknown]
